FAERS Safety Report 12143745 (Version 1)
Quarter: 2016Q1

REPORT INFORMATION
  Report Type: Spontaneous
  Country: US (occurrence: US)
  Receive Date: 20160304
  Receipt Date: 20160304
  Transmission Date: 20160526
  Serious: No
  Sender: FDA-Public Use
  Company Number: US-JNJFOC-20160205397

PATIENT
  Age: 28 Year
  Sex: Female
  Weight: 61.24 kg

DRUGS (3)
  1. ZYRTEC [Suspect]
     Active Substance: CETIRIZINE HYDROCHLORIDE
     Indication: COUGH
     Route: 048
     Dates: start: 20160203, end: 20160204
  2. ZYRTEC [Suspect]
     Active Substance: CETIRIZINE HYDROCHLORIDE
     Route: 048
  3. DELSYM [Concomitant]
     Active Substance: DEXTROMETHORPHAN
     Indication: COUGH
     Dosage: INTERVAL 2
     Route: 065
     Dates: start: 20160203

REACTIONS (3)
  - Accidental exposure to product [Unknown]
  - Fatigue [Recovered/Resolved]
  - Hypoaesthesia oral [Recovered/Resolved]
